FAERS Safety Report 6752578-0 (Version None)
Quarter: 2010Q2

REPORT INFORMATION
  Report Type: 
  Country: None (occurrence: None)
  Receive Date: 20100602
  Receipt Date: 20100521
  Transmission Date: 20101027
  Serious: Yes (Hospitalization)
  Sender: FDA-Public Use
  Company Number: PHHY2010US33233

PATIENT
  Sex: Male
  Weight: 77.098 kg

DRUGS (4)
  1. RECLAST [Suspect]
     Indication: OSTEOPOROSIS
     Dosage: 5 MG
     Route: 042
     Dates: start: 20100311, end: 20100311
  2. VERAPAMIL [Concomitant]
     Indication: ARRHYTHMIA SUPRAVENTRICULAR
  3. NEXIUM [Concomitant]
     Indication: OESOPHAGEAL SPASM
  4. AVASTIN [Concomitant]
     Indication: MACULAR DEGENERATION

REACTIONS (13)
  - CHILLS [None]
  - DECREASED APPETITE [None]
  - DISCOMFORT [None]
  - FATIGUE [None]
  - HYPOCHROMASIA [None]
  - MACROCYTOSIS [None]
  - MALAISE [None]
  - NAUSEA [None]
  - ORAL HERPES [None]
  - PYREXIA [None]
  - STRESS [None]
  - TREMOR [None]
  - VOMITING [None]
